FAERS Safety Report 8560987-2 (Version None)
Quarter: 2012Q3

REPORT INFORMATION
  Report Type: 
  Country: None (occurrence: None)
  Receive Date: 20120802
  Receipt Date: 20120726
  Transmission Date: 20120928
  Serious: Yes (Other)
  Sender: FDA-Public Use
  Company Number: US-ABBOTT-12P-163-0961548-00

PATIENT
  Sex: Male
  Weight: 59.02 kg

DRUGS (3)
  1. HUMIRA [Suspect]
     Indication: ECZEMA
     Dates: start: 20110805
  2. NEXIUM [Concomitant]
     Indication: GASTROOESOPHAGEAL REFLUX DISEASE
  3. PREDNISONE TAB [Suspect]
     Indication: PRODUCT USED FOR UNKNOWN INDICATION

REACTIONS (6)
  - INTERVERTEBRAL DISC DEGENERATION [None]
  - BACK INJURY [None]
  - OFF LABEL USE [None]
  - BACK PAIN [None]
  - ROTATOR CUFF SYNDROME [None]
  - THERAPEUTIC RESPONSE UNEXPECTED [None]
